FAERS Safety Report 4728902-7 (Version None)
Quarter: 2005Q3

REPORT INFORMATION
  Report Type: 
  Country: None (occurrence: None)
  Receive Date: 20050729
  Receipt Date: 20050504
  Transmission Date: 20060218
  Serious: No
  Sender: FDA-Public Use
  Company Number: US-GLAXOSMITHKLINE-A0557250A

PATIENT
  Age: 34 Year
  Sex: Female

DRUGS (6)
  1. IMITREX [Suspect]
     Indication: MIGRAINE
     Dosage: 100MG AS REQUIRED
     Route: 048
  2. WELLBUTRIN XL [Concomitant]
  3. SYNTHROID [Concomitant]
  4. LAMICTAL [Concomitant]
  5. TOPAMAX [Concomitant]
  6. YASMIN [Concomitant]

REACTIONS (1)
  - DRUG INEFFECTIVE [None]
